FAERS Safety Report 18957296 (Version 1)
Quarter: 2021Q1

REPORT INFORMATION
  Report Type: Spontaneous
  Country: US (occurrence: US)
  Receive Date: 20210301
  Receipt Date: 20210301
  Transmission Date: 20210420
  Serious: Yes (Other)
  Sender: FDA-Public Use
  Company Number: None

PATIENT
  Age: 90 Year
  Sex: Male
  Weight: 79.2 kg

DRUGS (8)
  1. LOVASTATIN 10MG [Concomitant]
  2. METFORMIN [Concomitant]
     Active Substance: METFORMIN HYDROCHLORIDE
  3. NINLARO [Suspect]
     Active Substance: IXAZOMIB CITRATE
     Indication: PLASMA CELL MYELOMA
     Dosage: ?          OTHER FREQUENCY:DAY1,8,15 Q28DAYS;?
     Route: 048
     Dates: start: 20210206, end: 20210301
  4. POMALYST 3MG [Concomitant]
  5. GABAPENTIN 300MG [Concomitant]
     Active Substance: GABAPENTIN
  6. CLOPIDOGREL [Concomitant]
     Active Substance: CLOPIDOGREL BISULFATE
  7. TAMSULOSIN 0.4MG [Concomitant]
     Active Substance: TAMSULOSIN
  8. CARVEDILOL 12.5MG [Concomitant]
     Active Substance: CARVEDILOL

REACTIONS (1)
  - Hospice care [None]

NARRATIVE: CASE EVENT DATE: 20210301
